FAERS Safety Report 17976800 (Version 9)
Quarter: 2020Q3

REPORT INFORMATION
  Report Type: Report from Study
  Country: US (occurrence: US)
  Receive Date: 20200702
  Receipt Date: 20200914
  Transmission Date: 20201103
  Serious: Yes (Hospitalization)
  Sender: FDA-Public Use
  Company Number: NVSC2020US186058

PATIENT
  Age: 26 Year
  Sex: Female
  Weight: 94.33 kg

DRUGS (5)
  1. TREPROSTINIL. [Suspect]
     Active Substance: TREPROSTINIL
     Dosage: UNK, 5 NG/KG/MIN, CONTINUOUS
     Route: 042
     Dates: start: 20200628
  2. TREPROSTINIL. [Suspect]
     Active Substance: TREPROSTINIL
     Dosage: UNK, 7 NG/KG/MIN, CONTINOUS
     Route: 042
     Dates: start: 20200628
  3. TREPROSTINIL. [Suspect]
     Active Substance: TREPROSTINIL
     Dosage: UNK (8 NG/KG/MIN), CONTINOUS
     Route: 042
     Dates: start: 20200628
  4. TREPROSTINIL. [Suspect]
     Active Substance: TREPROSTINIL
     Indication: PULMONARY ARTERIAL HYPERTENSION
     Dosage: UNK 5 NG/KG/MIN, CONTINUOUS
     Route: 042
  5. SILDENAFIL. [Concomitant]
     Active Substance: SILDENAFIL
     Indication: PRODUCT USED FOR UNKNOWN INDICATION
     Dosage: UNK
     Route: 065

REACTIONS (14)
  - Hypotension [Unknown]
  - Vomiting [Unknown]
  - Haemodynamic instability [Unknown]
  - Cough [Unknown]
  - Complication associated with device [Unknown]
  - Skin irritation [Unknown]
  - Dizziness [Unknown]
  - Headache [Unknown]
  - Pruritus [Unknown]
  - Nausea [Unknown]
  - Low cardiac output syndrome [Unknown]
  - Diarrhoea [Unknown]
  - Choking sensation [Unknown]
  - Dyspnoea [Unknown]

NARRATIVE: CASE EVENT DATE: 20200613
